FAERS Safety Report 8463366-1 (Version None)
Quarter: 2012Q2

REPORT INFORMATION
  Report Type: 
  Country: None (occurrence: None)
  Receive Date: 20120625
  Receipt Date: 20120611
  Transmission Date: 20120825
  Serious: Yes (Hospitalization)
  Sender: FDA-Public Use
  Company Number: GB-MERCK-1206USA02257

PATIENT

DRUGS (3)
  1. THALIDOMIDE [Suspect]
     Indication: MULTIPLE MYELOMA
     Dosage: 15-200MG
     Route: 065
  2. DECADRON [Suspect]
     Indication: MULTIPLE MYELOMA
     Route: 048
  3. BENDAMUSTINE [Suspect]
     Indication: MULTIPLE MYELOMA
     Dosage: 60 MG/M2 ON DAYS 1, 8 (AND 15)
     Route: 065

REACTIONS (2)
  - MYOPATHY [None]
  - HYPERGLYCAEMIA [None]
